FAERS Safety Report 11548447 (Version 2)
Quarter: 2015Q4

REPORT INFORMATION
  Report Type: Spontaneous
  Country: US (occurrence: US)
  Receive Date: 20150924
  Receipt Date: 20151001
  Transmission Date: 20160304
  Serious: No
  Sender: FDA-Public Use
  Company Number: US-009507513-1509USA009883

PATIENT
  Age: 47 Year
  Sex: Female

DRUGS (2)
  1. BELSOMRA [Suspect]
     Active Substance: SUVOREXANT
     Indication: INSOMNIA
     Dosage: 60 MG, UNK
     Route: 048
     Dates: start: 20150913
  2. BELSOMRA [Suspect]
     Active Substance: SUVOREXANT
     Dosage: 2-3 DOSES
     Route: 048

REACTIONS (3)
  - Sleep paralysis [Recovered/Resolved]
  - Overdose [Unknown]
  - Drug ineffective [Unknown]

NARRATIVE: CASE EVENT DATE: 20150913
